FAERS Safety Report 5391759-8 (Version None)
Quarter: 2007Q3

REPORT INFORMATION
  Report Type: 
  Country: None (occurrence: None)
  Receive Date: 20070717
  Receipt Date: 20070704
  Transmission Date: 20080115
  Serious: Yes (Other)
  Sender: FDA-Public Use
  Company Number: GXKR2007DK05833

PATIENT
  Age: 25 Year
  Sex: Female

DRUGS (1)
  1. METFORMIN (NGX) (METFORMIN) TABLET, 500MG [Suspect]
     Indication: POLYCYSTIC OVARIES
     Dosage: 500 MG, ORAL
     Route: 048
     Dates: start: 20060129, end: 20070126

REACTIONS (2)
  - ABORTION INDUCED [None]
  - DRUG EXPOSURE DURING PREGNANCY [None]
